FAERS Safety Report 7825895-0 (Version None)
Quarter: 2011Q4

REPORT INFORMATION
  Report Type: 
  Country: None (occurrence: None)
  Receive Date: 20111019
  Receipt Date: 20111004
  Transmission Date: 20120403
  Serious: Yes (Other)
  Sender: FDA-Public Use
  Company Number: RU-ROCHE-1002059

PATIENT

DRUGS (1)
  1. ROCEPHIN [Suspect]
     Route: 065

REACTIONS (3)
  - TACHYCARDIA [None]
  - ANGINA PECTORIS [None]
  - HYPOTONIA [None]
